FAERS Safety Report 16463820 (Version 1)
Quarter: 2019Q2

REPORT INFORMATION
  Report Type: Report from Study
  Country: US (occurrence: US)
  Receive Date: 20190621
  Receipt Date: 20190621
  Transmission Date: 20190711
  Serious: Yes (Hospitalization)
  Sender: FDA-Public Use
  Company Number: US-BAYER-2019-085792

PATIENT
  Sex: Female

DRUGS (2)
  1. BETASERON [Suspect]
     Active Substance: INTERFERON BETA-1B
     Indication: MULTIPLE SCLEROSIS
     Dosage: 0.25 MG, QOD
     Route: 058
     Dates: start: 201904
  2. BETASERON [Suspect]
     Active Substance: INTERFERON BETA-1B
     Indication: MULTIPLE SCLEROSIS
     Dosage: 1 ML, QOD, 0.3MG/1.2ML
     Route: 058
     Dates: start: 20160628

REACTIONS (4)
  - Hospitalisation [Not Recovered/Not Resolved]
  - Decreased interest [None]
  - Depression [None]
  - Depressed mood [None]

NARRATIVE: CASE EVENT DATE: 2019
